FAERS Safety Report 4700262-7 (Version None)
Quarter: 2005Q2

REPORT INFORMATION
  Report Type: 
  Country: None (occurrence: None)
  Receive Date: 20050624
  Receipt Date: 20050624
  Transmission Date: 20051028
  Serious: Yes (Other)
  Sender: FDA-Public Use
  Company Number: None

PATIENT

DRUGS (2)
  1. RAZADYNE    8MG    JANSSEN/ORTHO-MCNEIL [Suspect]
     Indication: DEMENTIA ALZHEIMER'S TYPE
     Dosage: 8MG BID  PO  ORAL
     Route: 048
     Dates: start: 20050520, end: 20050620
  2. RAZADYN  ER    8MG     JANSSEN/ORTHO-MCNEIL [Suspect]
     Indication: DEMENTIA ALZHEIMER'S TYPE
     Dosage: 8MG  QD   PO   ORAL
     Route: 048

REACTIONS (2)
  - DRUG DISPENSING ERROR [None]
  - MEDICATION ERROR [None]
